FAERS Safety Report 9002228 (Version 1)
Quarter: 2013Q1

REPORT INFORMATION
  Report Type: Spontaneous
  Country: FR (occurrence: FR)
  Receive Date: 20130107
  Receipt Date: 20130107
  Transmission Date: 20140127
  Serious: Yes (Life-Threatening, Hospitalization, Disabling, Other)
  Sender: FDA-Public Use
  Company Number: FR-ASTELLAS-2012EU010829

PATIENT
  Sex: Female

DRUGS (9)
  1. PROGRAF [Suspect]
     Indication: RENAL TRANSPLANT
     Dosage: 1.5 MG, UNKNOWN/D
     Route: 065
     Dates: start: 1998
  2. PROGRAF [Suspect]
     Indication: PROPHYLAXIS
  3. CELLCEPT                           /01275102/ [Concomitant]
     Indication: RENAL TRANSPLANT
     Dosage: 500 MG, UNKNOWN/D
     Route: 065
  4. CORTICOSTEROID NOS [Concomitant]
     Indication: RENAL TRANSPLANT
     Dosage: UNK
     Route: 065
  5. TAREG [Concomitant]
     Indication: HYPERTENSION
     Dosage: 5 MG, UNKNOWN/D
     Route: 065
  6. AMLOR [Concomitant]
     Indication: HYPERTENSION
     Dosage: 5 MG, UNKNOWN/D
     Route: 065
  7. ZYLORIC [Concomitant]
     Indication: HYPERURICAEMIA
     Dosage: 100 MG, UNKNOWN/D
     Route: 065
  8. MIRCERA [Concomitant]
     Indication: ANAEMIA
     Dosage: 75 UG/0.3ML
     Route: 065
  9. BISOPROLOL [Concomitant]
     Indication: HYPERTENSION
     Dosage: 10 MG, UNKNOWN/D
     Route: 065

REACTIONS (3)
  - Pancreatitis acute [Unknown]
  - Pancreatic carcinoma [Unknown]
  - Gallstone ileus [Unknown]
